FAERS Safety Report 6956258-8 (Version None)
Quarter: 2010Q3

REPORT INFORMATION
  Report Type: 
  Country: None (occurrence: None)
  Receive Date: 20100830
  Receipt Date: 20100820
  Transmission Date: 20110219
  Serious: Yes (Hospitalization)
  Sender: FDA-Public Use
  Company Number: B0671655A

PATIENT
  Sex: Male

DRUGS (2)
  1. BETNEVAL [Suspect]
     Indication: BALANITIS
     Dosage: 1UNIT PER DAY
     Route: 061
     Dates: start: 20100525, end: 20100701
  2. DAKIN [Concomitant]
     Route: 061
     Dates: start: 20100501

REACTIONS (6)
  - GANGRENE [None]
  - GENITAL ERYTHEMA [None]
  - HAEMATURIA [None]
  - PENILE NECROSIS [None]
  - PENILE PAIN [None]
  - PENILE ULCERATION [None]
